FAERS Safety Report 6404573-9 (Version None)
Quarter: 2009Q4

REPORT INFORMATION
  Report Type: 
  Country: None (occurrence: None)
  Receive Date: 20091016
  Receipt Date: 20091014
  Transmission Date: 20100525
  Serious: Yes (Death, Hospitalization)
  Sender: FDA-Public Use
  Company Number: PHHY2009CA42590

PATIENT
  Sex: Female

DRUGS (14)
  1. CLOZARIL [Suspect]
     Indication: SCHIZOPHRENIA
     Dosage: 25 MG, BID
     Dates: start: 20070901
  2. CLOZARIL [Suspect]
     Indication: BIPOLAR DISORDER
  3. SEROQUEL [Concomitant]
     Dosage: 400 HS
  4. EPIVAL [Concomitant]
  5. NOZINAN [Concomitant]
  6. CLONAZEPAM [Concomitant]
  7. TYLENOL [Concomitant]
  8. AVAPRO [Concomitant]
  9. DIAMICRON [Concomitant]
  10. LIPITOR [Concomitant]
  11. PARIET [Concomitant]
  12. ASPIRIN [Concomitant]
  13. VITAMIN B-12 [Concomitant]
     Dosage: UNK
  14. DETROL [Concomitant]

REACTIONS (2)
  - PNEUMONIA [None]
  - RESPIRATORY DISORDER [None]
